FAERS Safety Report 21274238 (Version 1)
Quarter: 2022Q3

REPORT INFORMATION
  Report Type: Spontaneous
  Country: GB (occurrence: GB)
  Receive Date: 20220831
  Receipt Date: 20220831
  Transmission Date: 20221027
  Serious: Yes (Death)
  Sender: FDA-Public Use
  Company Number: None

PATIENT
  Age: 72 Year
  Sex: Female

DRUGS (4)
  1. PACLITAXEL [Suspect]
     Active Substance: PACLITAXEL
     Indication: Non-small cell lung cancer
     Dosage: 90 MG, CYCLIC (WEEKLY X6)
     Dates: start: 20210629, end: 20210803
  2. DURVALUMAB [Suspect]
     Active Substance: DURVALUMAB
     Indication: Non-small cell lung cancer
     Dosage: 1500 MG (1 CYCLE OF ADJUVANT)
     Dates: start: 20210913
  3. DURVALUMAB [Suspect]
     Active Substance: DURVALUMAB
     Indication: Adjuvant therapy
  4. CARBOPLATIN [Concomitant]
     Active Substance: CARBOPLATIN
     Indication: Non-small cell lung cancer
     Dosage: UNK, CYCLIC (WEEKLY X6)
     Dates: start: 20210629, end: 20210803

REACTIONS (2)
  - Death [Fatal]
  - General physical health deterioration [Unknown]
